FAERS Safety Report 14210313 (Version 1)
Quarter: 2017Q4

REPORT INFORMATION
  Report Type: Spontaneous
  Country: FR (occurrence: FR)
  Receive Date: 20171121
  Receipt Date: 20171121
  Transmission Date: 20180321
  Serious: Yes (Hospitalization, Other)
  Sender: FDA-Public Use
  Company Number: FR-PFIZER INC-2017493452

PATIENT
  Age: 80 Year
  Sex: Female

DRUGS (2)
  1. IBRANCE [Suspect]
     Active Substance: PALBOCICLIB
     Indication: INVASIVE LOBULAR BREAST CARCINOMA
     Dosage: 100 MG, CYCLIC (21 IN 28 DAYS)
     Route: 048
     Dates: start: 20170207, end: 20170327
  2. FASLODEX [Concomitant]
     Active Substance: FULVESTRANT
     Indication: INVASIVE LOBULAR BREAST CARCINOMA
     Dosage: 2 DF, 2 IN 28 DAYS
     Route: 030
     Dates: start: 20170207, end: 20170321

REACTIONS (1)
  - Hypersensitivity vasculitis [Recovered/Resolved]

NARRATIVE: CASE EVENT DATE: 20170322
